FAERS Safety Report 9734074 (Version 1)
Quarter: 2013Q4

REPORT INFORMATION
  Report Type: Report from Study
  Country: GB (occurrence: GB)
  Receive Date: 20131205
  Receipt Date: 20131205
  Transmission Date: 20140711
  Serious: Yes (Death, Hospitalization)
  Sender: FDA-Public Use
  Company Number: GB-ABBVIE-13P-167-1175705-00

PATIENT
  Sex: Male
  Weight: 94 kg

DRUGS (1)
  1. HUMIRA [Suspect]
     Indication: RHEUMATOID ARTHRITIS
     Route: 058
     Dates: start: 20051121, end: 20110719

REACTIONS (8)
  - Renal failure acute [Fatal]
  - Bronchopneumonia [Fatal]
  - Rheumatoid arthritis [Fatal]
  - Chronic obstructive pulmonary disease [Fatal]
  - Pneumonia [Fatal]
  - Renal failure [Fatal]
  - Sepsis [Unknown]
  - Metabolic acidosis [Unknown]
